FAERS Safety Report 10013083 (Version 1)
Quarter: 2014Q1

REPORT INFORMATION
  Report Type: Spontaneous
  Country: US (occurrence: US)
  Receive Date: 20140314
  Receipt Date: 20140314
  Transmission Date: 20141002
  Serious: No
  Sender: FDA-Public Use
  Company Number: US-PFIZER INC-2014072038

PATIENT
  Sex: Female

DRUGS (3)
  1. QUILLIVANT XR [Suspect]
     Dosage: UNK, 1X/DAY (IN THE MORNING)
  2. QUILLIVANT XR [Suspect]
     Dosage: UNK, 2X/DAY
  3. PROZAC [Suspect]
     Dosage: UNK

REACTIONS (2)
  - Wrong drug administered [Unknown]
  - Insomnia [Unknown]
